FAERS Safety Report 13847495 (Version 2)
Quarter: 2017Q3

REPORT INFORMATION
  Report Type: Spontaneous
  Country: RS (occurrence: RS)
  Receive Date: 20170808
  Receipt Date: 20170818
  Transmission Date: 20171127
  Serious: Yes (Other)
  Sender: FDA-Public Use
  Company Number: RS-009507513-1706SRB011533

PATIENT
  Age: 55 Year
  Sex: Female

DRUGS (2)
  1. RIBAVIRIN. [Suspect]
     Active Substance: RIBAVIRIN
     Indication: CRYOGLOBULINAEMIA
     Dosage: UNK
     Route: 048
     Dates: start: 2007, end: 2008
  2. PEGINTERFERON ALFA-2A. [Suspect]
     Active Substance: PEGINTERFERON ALFA-2A
     Indication: CRYOGLOBULINAEMIA
     Dosage: UNK
     Dates: start: 2007, end: 2008

REACTIONS (3)
  - Anaemia [Unknown]
  - Chronic kidney disease [Unknown]
  - Treatment failure [Unknown]
